FAERS Safety Report 8428038 (Version 2)
Quarter: 2013Q1

REPORT INFORMATION
  Report Type: Spontaneous
  Country: JP (occurrence: JP)
  Receive Date: 20120227
  Receipt Date: 20130108
  Transmission Date: 20140127
  Serious: Yes (Death, Hospitalization)
  Sender: FDA-Public Use
  Company Number: JP-ROCHE-696672

PATIENT
  Age: 63 Year
  Sex: Male
  Weight: 67 kg

DRUGS (4)
  1. AVASTIN [Suspect]
     Indication: LUNG ADENOCARCINOMA METASTATIC
     Route: 041
     Dates: start: 20100204, end: 20100302
  2. CARBOPLATIN [Concomitant]
     Route: 041
     Dates: start: 20100204, end: 20100302
  3. ALIMTA [Concomitant]
     Route: 041
     Dates: start: 20100204, end: 20100302
  4. CISPLATIN [Concomitant]
     Indication: LUNG ADENOCARCINOMA METASTATIC
     Route: 041
     Dates: start: 20100204, end: 20100302

REACTIONS (3)
  - Lung adenocarcinoma metastatic [Fatal]
  - Pulmonary embolism [Recovering/Resolving]
  - Deep vein thrombosis [Not Recovered/Not Resolved]
